FAERS Safety Report 12167464 (Version 1)
Quarter: 2016Q1

REPORT INFORMATION
  Report Type: Spontaneous
  Country: US (occurrence: US)
  Receive Date: 20160310
  Receipt Date: 20160310
  Transmission Date: 20160526
  Serious: Yes (Other)
  Sender: FDA-Public Use
  Company Number: US-PFIZER INC-2016130879

PATIENT
  Sex: Female
  Weight: 67 kg

DRUGS (3)
  1. DILTIAZEM HYDROCHLORIDE. [Concomitant]
     Active Substance: DILTIAZEM HYDROCHLORIDE
     Indication: CARDIAC DISORDER
     Dosage: 360 MG, 1X/DAY
  2. IBRANCE [Suspect]
     Active Substance: PALBOCICLIB
     Indication: BREAST CANCER STAGE IV
     Dosage: 125 MG, 1X/DAY(3 WEEKS AND THEN OFF FOR A WEEK)
  3. LETROZOLE. [Concomitant]
     Active Substance: LETROZOLE
     Dosage: UNK

REACTIONS (11)
  - Apathy [Recovered/Resolved]
  - Dysgeusia [Recovered/Resolved]
  - Leukopenia [Recovered/Resolved]
  - Fatigue [Recovered/Resolved]
  - Diarrhoea [Recovered/Resolved]
  - Blood count abnormal [Recovered/Resolved]
  - Weight decreased [Recovered/Resolved]
  - Neutropenia [Recovered/Resolved]
  - Malaise [Recovered/Resolved]
  - Nasopharyngitis [Recovered/Resolved]
  - Decreased appetite [Recovered/Resolved]
